FAERS Safety Report 24445251 (Version 1)
Quarter: 2024Q4

REPORT INFORMATION
  Report Type: Spontaneous
  Country: JP (occurrence: JP)
  Receive Date: 20241016
  Receipt Date: 20241016
  Transmission Date: 20250115
  Serious: Yes (Hospitalization, Other)
  Sender: GLAND PHARMA LTD
  Company Number: JP-GLANDPHARMA-JP-2024GLNLIT00857

PATIENT
  Age: 69 Year
  Sex: Female

DRUGS (5)
  1. FLUOROURACIL [Suspect]
     Active Substance: FLUOROURACIL
     Indication: Rectal cancer metastatic
     Route: 065
  2. BEVACIZUMAB [Suspect]
     Active Substance: BEVACIZUMAB
     Indication: Rectal cancer metastatic
     Route: 065
  3. PANITUMUMAB [Suspect]
     Active Substance: PANITUMUMAB
     Indication: Rectal cancer metastatic
     Route: 065
  4. TIPIRACIL [Suspect]
     Active Substance: TIPIRACIL
     Indication: Rectal cancer metastatic
     Route: 065
  5. TRIFLURIDINE [Suspect]
     Active Substance: TRIFLURIDINE
     Indication: Rectal cancer metastatic
     Route: 065

REACTIONS (1)
  - Subdural abscess [Recovering/Resolving]
